FAERS Safety Report 5745158-7 (Version None)
Quarter: 2008Q2

REPORT INFORMATION
  Report Type: 
  Country: None (occurrence: None)
  Receive Date: 20080521
  Receipt Date: 20080513
  Transmission Date: 20081010
  Serious: Yes (Hospitalization, Other)
  Sender: FDA-Public Use
  Company Number: PHHY2008SE07810

PATIENT
  Age: 64 Year
  Sex: Female

DRUGS (9)
  1. ESIDRIX [Suspect]
     Indication: HYPERTENSION
     Dosage: 25 MG, QD
     Dates: start: 20080318, end: 20080326
  2. ATACAND [Concomitant]
     Indication: BLOOD PRESSURE
     Dosage: 16 MG, QD
  3. ATACAND [Concomitant]
     Dosage: 8 MG, QD
  4. PLENDIL [Concomitant]
     Indication: BLOOD PRESSURE
     Dosage: 5 MG, QD
  5. METOPROLOL TARTRATE [Concomitant]
     Indication: BLOOD PRESSURE
     Dosage: 50 MG, UNK
  6. ORALOVITE [Concomitant]
  7. AERIUS [Concomitant]
  8. SPIRIVA [Concomitant]
  9. ALCOHOL [Suspect]

REACTIONS (6)
  - AGITATION [None]
  - ALCOHOL INDUCED PERSISTING DEMENTIA [None]
  - ANXIETY [None]
  - CONFUSIONAL STATE [None]
  - DEPRESSED LEVEL OF CONSCIOUSNESS [None]
  - HYPONATRAEMIA [None]
